FAERS Safety Report 22225883 (Version 1)
Quarter: 2023Q2

REPORT INFORMATION
  Report Type: Spontaneous
  Country: DE (occurrence: DE)
  Receive Date: 20230419
  Receipt Date: 20230419
  Transmission Date: 20230722
  Serious: Yes (Hospitalization, Other)
  Sender: FDA-Public Use
  Company Number: DE-002147023-NVSC2023DE078858

PATIENT
  Age: 63 Year
  Sex: Female

DRUGS (3)
  1. BISOPROLOL [Suspect]
     Active Substance: BISOPROLOL
     Indication: Product used for unknown indication
     Dosage: UNK
     Route: 065
  2. LEVOTHYROXINE SODIUM [Suspect]
     Active Substance: LEVOTHYROXINE SODIUM
     Indication: Hypothyroidism
     Dosage: ONCE A DAY (QD (1-0-0) (IN THE MORNING ON AN EMPTY STOMACH, 50 - 1 A PHARMA))
     Route: 065
  3. VERAPAMIL [Suspect]
     Active Substance: VERAPAMIL HYDROCHLORIDE
     Indication: Arrhythmia
     Dosage: TWO TIMES A DAY (BID (1-0-1), 80 - 1 A PHARMA)
     Route: 065

REACTIONS (2)
  - Arrhythmia [Unknown]
  - Heart rate decreased [Unknown]
